FAERS Safety Report 5148589-1 (Version None)
Quarter: 2006Q4

REPORT INFORMATION
  Report Type: 
  Country: None (occurrence: None)
  Receive Date: 20061107
  Receipt Date: 20061024
  Transmission Date: 20070319
  Serious: Yes (Death, Life-Threatening)
  Sender: FDA-Public Use
  Company Number: 2006JP002362

PATIENT
  Age: 79 Year
  Sex: Male
  Weight: 37.4 kg

DRUGS (9)
  1. FUNGUARD (MICAFUNGIN INJECTION)INJECTION [Suspect]
     Indication: BRONCHOPULMONARY ASPERGILLOSIS
     Dosage: 225 MG, UID/QD, IV DRIP
     Route: 041
     Dates: start: 20050407, end: 20050414
  2. BETAMETHASONE VALERATE [Suspect]
     Dosage: 4 MG, /D,
  3. NEOPHYLLIN (AMINOPHYLLINE) INJECTION [Concomitant]
  4. TIENAM (IMIPENEM, CILASTATIN SODIUM) INJECTION [Concomitant]
  5. MUCODYNE (CARBOCISTEINE) [Concomitant]
  6. MUCOSOLVAN (AMBROXOL HYDROCHLORIDE) [Concomitant]
  7. SLO-BID [Concomitant]
  8. ERTYTHROCIN (ERYTHROMYCIN STEARATE) [Concomitant]
  9. HOKUNALIN (TULOBUTEROL HYDROCHLORIDE) [Concomitant]

REACTIONS (6)
  - CONDITION AGGRAVATED [None]
  - GASTROINTESTINAL PERFORATION [None]
  - GASTROINTESTINAL ULCER [None]
  - PERITONITIS [None]
  - PNEUMONIA STAPHYLOCOCCAL [None]
  - UPPER GASTROINTESTINAL HAEMORRHAGE [None]
